FAERS Safety Report 14297182 (Version 1)
Quarter: 2017Q4

REPORT INFORMATION
  Report Type: Spontaneous
  Country: JP (occurrence: JP)
  Receive Date: 20171218
  Receipt Date: 20171218
  Transmission Date: 20180321
  Serious: Yes (Hospitalization, Other)
  Sender: FDA-Public Use
  Company Number: JP-GILEAD-2017-0308800

PATIENT
  Age: 77 Year
  Sex: Female
  Weight: 50 kg

DRUGS (1)
  1. HARVONI [Suspect]
     Active Substance: LEDIPASVIR\SOFOSBUVIR
     Indication: CHRONIC HEPATITIS C
     Dosage: 1 DF, UNK
     Route: 048
     Dates: start: 20171108, end: 20171204

REACTIONS (4)
  - Coating in mouth [Recovered/Resolved]
  - Pharyngeal stenosis [Recovering/Resolving]
  - Pharyngitis [Recovered/Resolved]
  - Ulcer [Unknown]

NARRATIVE: CASE EVENT DATE: 2017
